FAERS Safety Report 9879816 (Version 1)
Quarter: 2014Q1

REPORT INFORMATION
  Report Type: Spontaneous
  Country: IT (occurrence: IT)
  Receive Date: 20140206
  Receipt Date: 20140206
  Transmission Date: 20141002
  Serious: Yes (Hospitalization)
  Sender: FDA-Public Use
  Company Number: IT-MYLANLABS-2014S1002066

PATIENT
  Age: 91 Year
  Sex: Male
  Weight: 0 kg

DRUGS (4)
  1. ENALAPRIL MALEATE [Suspect]
     Indication: HYPERTENSION
     Dosage: 5 MG DAILY
     Route: 048
     Dates: start: 20130101, end: 20131201
  2. BISOPROLOL HEMIFUMARATE [Suspect]
     Indication: HYPERTENSION
     Dosage: 1.25 MG DAILY
     Route: 048
     Dates: start: 20130101, end: 20131205
  3. ACETYLSALICYLIC ACID [Concomitant]
     Indication: AORTIC ANEURYSM
     Dosage: 100 MG
     Route: 048
  4. BROMAZEPAM [Concomitant]
     Indication: PRODUCT USED FOR UNKNOWN INDICATION

REACTIONS (2)
  - Renal failure acute [Recovered/Resolved]
  - Syncope [Recovered/Resolved]
